FAERS Safety Report 22587234 (Version 1)
Quarter: 2023Q2

REPORT INFORMATION
  Report Type: Spontaneous
  Country: DE (occurrence: DE)
  Receive Date: 20230612
  Receipt Date: 20230612
  Transmission Date: 20230722
  Serious: Yes (Other)
  Sender: FDA-Public Use
  Company Number: DE-AMGEN-DEUSP2023099255

PATIENT

DRUGS (24)
  1. ADALIMUMAB [Suspect]
     Active Substance: ADALIMUMAB
     Indication: Autoinflammatory disease
     Dosage: UNK
     Route: 065
  2. ADALIMUMAB [Suspect]
     Active Substance: ADALIMUMAB
     Indication: Autoimmune disorder
  3. RITUXIMAB [Concomitant]
     Active Substance: RITUXIMAB
     Indication: Autoinflammatory disease
     Dosage: UNK
     Route: 065
  4. RITUXIMAB [Concomitant]
     Active Substance: RITUXIMAB
     Indication: Autoimmune disorder
  5. INFLIXIMAB [Concomitant]
     Active Substance: INFLIXIMAB
     Indication: Autoimmune disorder
     Dosage: UNK
     Route: 065
  6. INFLIXIMAB [Concomitant]
     Active Substance: INFLIXIMAB
     Indication: Autoinflammatory disease
  7. VEDOLIZUMAB [Concomitant]
     Active Substance: VEDOLIZUMAB
     Indication: Autoimmune disorder
     Dosage: UNK
     Route: 065
  8. VEDOLIZUMAB [Concomitant]
     Active Substance: VEDOLIZUMAB
     Indication: Autoinflammatory disease
  9. GUSELKUMAB [Concomitant]
     Active Substance: GUSELKUMAB
     Indication: Autoimmune disorder
     Dosage: UNK
     Route: 065
  10. GUSELKUMAB [Concomitant]
     Active Substance: GUSELKUMAB
     Indication: Autoinflammatory disease
  11. NATALIZUMAB [Concomitant]
     Active Substance: NATALIZUMAB
     Indication: Autoinflammatory disease
     Dosage: UNK
     Route: 065
  12. NATALIZUMAB [Concomitant]
     Active Substance: NATALIZUMAB
     Indication: Autoimmune disorder
  13. USTEKINUMAB [Concomitant]
     Active Substance: USTEKINUMAB
     Indication: Autoinflammatory disease
     Dosage: UNK
     Route: 065
  14. USTEKINUMAB [Concomitant]
     Active Substance: USTEKINUMAB
     Indication: Autoimmune disorder
  15. AZATHIOPRINE [Concomitant]
     Active Substance: AZATHIOPRINE
     Indication: Autoinflammatory disease
     Dosage: UNK
     Route: 065
  16. AZATHIOPRINE [Concomitant]
     Active Substance: AZATHIOPRINE
     Indication: Autoimmune disorder
     Dosage: UNK
  17. SIROLIMUS [Concomitant]
     Active Substance: SIROLIMUS
     Indication: Autoinflammatory disease
     Dosage: UNK
  18. SIROLIMUS [Concomitant]
     Active Substance: SIROLIMUS
     Indication: Autoimmune disorder
  19. MYCOPHENOLATE MOFETIL [Concomitant]
     Active Substance: MYCOPHENOLATE MOFETIL
     Indication: Autoinflammatory disease
     Dosage: UNK
     Route: 065
  20. MYCOPHENOLATE MOFETIL [Concomitant]
     Active Substance: MYCOPHENOLATE MOFETIL
     Indication: Autoimmune disorder
  21. CYCLOPHOSPHAMIDE [Concomitant]
     Active Substance: CYCLOPHOSPHAMIDE
     Indication: Autoinflammatory disease
     Dosage: UNK
  22. CYCLOPHOSPHAMIDE [Concomitant]
     Active Substance: CYCLOPHOSPHAMIDE
     Indication: Autoimmune disorder
  23. ABATACEPT [Concomitant]
     Active Substance: ABATACEPT
     Indication: Autoinflammatory disease
     Dosage: UNK
  24. ABATACEPT [Concomitant]
     Active Substance: ABATACEPT
     Indication: Autoimmune disorder

REACTIONS (2)
  - Hypogammaglobulinaemia [Unknown]
  - Stem cell transplant [Unknown]
